FAERS Safety Report 7088559-X (Version None)
Quarter: 2010Q4

REPORT INFORMATION
  Report Type: 
  Country: None (occurrence: None)
  Receive Date: 20101028
  Receipt Date: 20101013
  Transmission Date: 20110411
  Serious: Yes (Hospitalization)
  Sender: FDA-Public Use
  Company Number: 2010-01023

PATIENT
  Age: 85 Year
  Sex: Male

DRUGS (16)
  1. LISINOPRIL [Suspect]
     Indication: PRODUCT USED FOR UNKNOWN INDICATION
     Dosage: 40 MG (DAILY),ORAL
     Route: 048
  2. TIZANIDINE (UNKNOWN) [Suspect]
     Indication: PRODUCT USED FOR UNKNOWN INDICATION
     Dosage: 6 MG (2 MG,1 IN 8 HR),ORAL
     Route: 048
  3. ACETAMINOPHEN [Concomitant]
  4. CHLORPROMAZINE HYDROCHLORIDE (UNKNOWN) [Concomitant]
  5. CITALOPRAM (UNKNOWN) [Concomitant]
  6. LIDOCAINE 5% PATCH (UNKNOWN) [Concomitant]
  7. METFORMIN HYDROCHLORDIE (UNKNOWN) [Concomitant]
  8. PRAMIPEXOLE DIHYDROCHLORIDE (UNKNOWN) [Concomitant]
  9. OMEPRAZOLE (UNKOWN) [Concomitant]
  10. SIMVASTATIN [Concomitant]
  11. THEOPHYLLINE [Concomitant]
  12. DICLOFENAC 1% GEL (1 PERCENT, UNKNOWN) [Concomitant]
  13. HYDROCODONE-ACETAMINOPHEN (UNKNOWN) [Concomitant]
  14. ONDANSETRON (UNKNOWN) [Concomitant]
  15. GUAIFENESIN (UNKNOWN) [Concomitant]
  16. CODEINE COUGH SYRUP (UNKNOWN) [Concomitant]

REACTIONS (10)
  - ABSCESS [None]
  - ASTHENIA [None]
  - BLOOD CREATININE INCREASED [None]
  - BLOOD POTASSIUM INCREASED [None]
  - BLOOD PRESSURE SYSTOLIC INCREASED [None]
  - BLOOD SODIUM DECREASED [None]
  - BLOOD UREA INCREASED [None]
  - DRUG INTERACTION [None]
  - HYPOTENSION [None]
  - SINUS BRADYCARDIA [None]
